FAERS Safety Report 23349503 (Version 2)
Quarter: 2024Q3

REPORT INFORMATION
  Report Type: Spontaneous
  Country: AU (occurrence: AU)
  Receive Date: 20231229
  Receipt Date: 20240703
  Transmission Date: 20241016
  Serious: Yes (Other)
  Sender: COLLEGIUM PHARMACEUTICAL
  Company Number: AU-GRUNENTHAL-2023-317821

PATIENT

DRUGS (1)
  1. NUCYNTA [Suspect]
     Active Substance: TAPENTADOL HYDROCHLORIDE
     Indication: Neck pain
     Dosage: 50 MILLIGRAM, QD (1/DAY)
     Route: 065

REACTIONS (4)
  - Feeling abnormal [Unknown]
  - Hallucination, tactile [Unknown]
  - Tremor [Unknown]
  - Drug ineffective [Unknown]
